FAERS Safety Report 23605374 (Version 1)
Quarter: 2024Q1

REPORT INFORMATION
  Report Type: Spontaneous
  Country: US (occurrence: US)
  Receive Date: 20240307
  Receipt Date: 20240307
  Transmission Date: 20240410
  Serious: No
  Sender: FDA-Public Use
  Company Number: US-BAUSCHBL-2024BNL002584

PATIENT
  Age: 71 Year
  Sex: Female
  Weight: 60.78 kg

DRUGS (3)
  1. VYZULTA [Suspect]
     Active Substance: LATANOPROSTENE BUNOD
     Indication: Glaucoma
     Dosage: 1 DROP IN THE RIGHT EYE EVERY EVENING
     Route: 047
  2. VYZULTA [Suspect]
     Active Substance: LATANOPROSTENE BUNOD
     Indication: Growth of eyelashes
     Dosage: 1 DROP IN THE LEFT EYE EVERY WEEK
     Route: 047
  3. VYZULTA [Suspect]
     Active Substance: LATANOPROSTENE BUNOD
     Indication: Product use in unapproved indication

REACTIONS (7)
  - Epiretinal membrane [Unknown]
  - Disease progression [Unknown]
  - Fatigue [Unknown]
  - Gastrointestinal disorder [Unknown]
  - Gastrooesophageal reflux disease [Unknown]
  - Blood pressure decreased [Unknown]
  - Product use issue [Unknown]

NARRATIVE: CASE EVENT DATE: 20230101
